FAERS Safety Report 23144379 (Version 1)
Quarter: 2023Q4

REPORT INFORMATION
  Report Type: Spontaneous
  Country: US (occurrence: None)
  Receive Date: 20231102
  Receipt Date: 20231102
  Transmission Date: 20240110
  Serious: No
  Sender: FDA-Public Use
  Company Number: None

PATIENT

DRUGS (3)
  1. TALVEY [Suspect]
     Active Substance: TALQUETAMAB-TGVS
     Dosage: OTHER STRENGTH : 3 MG/1.5 ML;?
     Route: 058
  2. TALVEY [Suspect]
     Active Substance: TALQUETAMAB-TGVS
  3. TECVAYLI [Suspect]
     Active Substance: TECLISTAMAB-CQYV

REACTIONS (3)
  - Product label confusion [None]
  - Product packaging confusion [None]
  - Product name confusion [None]
